FAERS Safety Report 18987296 (Version 1)
Quarter: 2021Q1

REPORT INFORMATION
  Report Type: Spontaneous
  Country: US (occurrence: US)
  Receive Date: 20210309
  Receipt Date: 20210309
  Transmission Date: 20210420
  Serious: Yes (Other)
  Sender: FDA-Public Use
  Company Number: None

PATIENT
  Age: 81 Year
  Sex: Female
  Weight: 53.1 kg

DRUGS (4)
  1. SPIRONOLACTONE. [Concomitant]
     Active Substance: SPIRONOLACTONE
  2. FLECAINIDE 50 MG. [Suspect]
     Active Substance: FLECAINIDE
     Indication: BRADYCARDIA
     Dosage: ?          QUANTITY:60 TABLET(S);?
     Route: 048
     Dates: start: 20210121, end: 20210125
  3. B COMPLEX VITAMIN [Concomitant]
  4. FLECAINIDE [Suspect]
     Active Substance: FLECAINIDE
     Indication: BRADYCARDIA
     Dosage: ?          QUANTITY:60 TABLET(S);?
     Route: 048
     Dates: start: 20210122, end: 20210125

REACTIONS (2)
  - Visual acuity reduced [None]
  - Diplopia [None]

NARRATIVE: CASE EVENT DATE: 20210118
